FAERS Safety Report 10513715 (Version 1)
Quarter: 2014Q4

REPORT INFORMATION
  Report Type: Spontaneous
  Country: US (occurrence: US)
  Receive Date: 20141013
  Receipt Date: 20141013
  Transmission Date: 20150528
  Serious: No
  Sender: FDA-Public Use
  Company Number: US-009507513-1410USA005264

PATIENT
  Age: 27 Year
  Sex: Female

DRUGS (2)
  1. THERAPY UNSPECIFIED [Concomitant]
     Active Substance: UNSPECIFIED INGREDIENT
  2. NEXPLANON [Suspect]
     Active Substance: ETONOGESTREL
     Indication: MENSTRUAL CYCLE MANAGEMENT
     Dosage: UNK
     Route: 059
     Dates: start: 20130814

REACTIONS (3)
  - Dysmenorrhoea [Unknown]
  - Drug administration error [Unknown]
  - Menorrhagia [Unknown]

NARRATIVE: CASE EVENT DATE: 20130814
